FAERS Safety Report 14827917 (Version 1)
Quarter: 2018Q2

REPORT INFORMATION
  Report Type: Spontaneous
  Country: JP (occurrence: JP)
  Receive Date: 20180430
  Receipt Date: 20180430
  Transmission Date: 20180711
  Serious: Yes (Other)
  Sender: FDA-Public Use
  Company Number: JP-JNJFOC-20140520250

PATIENT
  Age: 52 Year
  Sex: Female

DRUGS (2)
  1. RISPERDAL [Suspect]
     Active Substance: RISPERIDONE
     Indication: ANXIETY
     Route: 048
     Dates: end: 20140527
  2. RISPERDAL [Suspect]
     Active Substance: RISPERIDONE
     Indication: ANXIETY
     Route: 048
     Dates: start: 20140530

REACTIONS (4)
  - Hallucination, auditory [Not Recovered/Not Resolved]
  - Off label use [Unknown]
  - Akathisia [Unknown]
  - Product use in unapproved indication [Unknown]

NARRATIVE: CASE EVENT DATE: 20140528
